FAERS Safety Report 9949046 (Version 1)
Quarter: 2014Q1

REPORT INFORMATION
  Report Type: Spontaneous
  Country: US (occurrence: US)
  Receive Date: 20140304
  Receipt Date: 20140304
  Transmission Date: 20141002
  Serious: No
  Sender: FDA-Public Use
  Company Number: US-PFIZER INC-2014060515

PATIENT
  Age: 14 Month
  Sex: Male

DRUGS (1)
  1. RAPAMUNE [Suspect]
     Dosage: UNK

REACTIONS (2)
  - Drug level decreased [Unknown]
  - Off label use [Unknown]
